FAERS Safety Report 24993639 (Version 1)
Quarter: 2025Q1

REPORT INFORMATION
  Report Type: Spontaneous
  Country: IN (occurrence: IN)
  Receive Date: 20250221
  Receipt Date: 20250221
  Transmission Date: 20250409
  Serious: Yes (Other)
  Sender: SANDOZ
  Company Number: IN-SANDOZ-SDZ2024IN047167

PATIENT
  Sex: Female

DRUGS (3)
  1. CERTICAN [Suspect]
     Active Substance: EVEROLIMUS
     Indication: Renal transplant
     Route: 048
  2. TACROLIMUS [Suspect]
     Active Substance: TACROLIMUS
     Indication: Renal transplant
     Dosage: 2 MG, BID
     Route: 048
     Dates: start: 20151230
  3. TACROLIMUS [Suspect]
     Active Substance: TACROLIMUS
     Route: 048

REACTIONS (6)
  - Systemic lupus erythematosus [Unknown]
  - Nephritis [Unknown]
  - New onset diabetes after transplantation [Unknown]
  - Polyomavirus-associated nephropathy [Unknown]
  - Ultrasound Doppler abnormal [Unknown]
  - BK virus infection [Unknown]
